FAERS Safety Report 9242822 (Version 1)
Quarter: 2013Q2

REPORT INFORMATION
  Report Type: Spontaneous
  Country: GB (occurrence: GB)
  Receive Date: 20130419
  Receipt Date: 20130419
  Transmission Date: 20140414
  Serious: Yes (Disabling)
  Sender: FDA-Public Use
  Company Number: GB-009507513-1304GBR009521

PATIENT
  Age: 63 Year
  Sex: Male
  Weight: 96.61 kg

DRUGS (4)
  1. ZOCOR [Suspect]
     Indication: BLOOD CHOLESTEROL INCREASED
     Dosage: 80 MG, UNK
     Route: 048
     Dates: start: 20080701, end: 20081101
  2. ASPIRIN [Concomitant]
  3. DIURETIC (UNSPECIFIED) [Concomitant]
  4. RAMIPRIL [Concomitant]

REACTIONS (1)
  - Abasia [Recovered/Resolved]
